FAERS Safety Report 17454862 (Version 1)
Quarter: 2020Q1

REPORT INFORMATION
  Report Type: Spontaneous
  Country: US (occurrence: US)
  Receive Date: 20200225
  Receipt Date: 20200225
  Transmission Date: 20200409
  Serious: Yes (Other)
  Sender: FDA-Public Use
  Company Number: US-SA-2020SA045251

PATIENT
  Age: 67 Year
  Sex: Female

DRUGS (1)
  1. LANTUS SOLOSTAR [Suspect]
     Active Substance: INSULIN GLARGINE
     Indication: TYPE 2 DIABETES MELLITUS
     Dosage: HALF IN THE MORNING AND HALF AT NIGHT
     Route: 065

REACTIONS (8)
  - Feeling abnormal [Unknown]
  - Cholecystectomy [Unknown]
  - Hypothyroidism [Unknown]
  - Diarrhoea [Unknown]
  - Treatment noncompliance [Unknown]
  - Weight increased [Unknown]
  - Wrong technique in device usage process [Unknown]
  - Inappropriate schedule of product administration [Unknown]
